FAERS Safety Report 9819552 (Version 1)
Quarter: 2014Q1

REPORT INFORMATION
  Report Type: Spontaneous
  Country: US (occurrence: None)
  Receive Date: 20140113
  Receipt Date: 20140113
  Transmission Date: 20141002
  Serious: Yes (Other)
  Sender: FDA-Public Use
  Company Number: FK201400057

PATIENT
  Age: 17 Year
  Sex: Female
  Weight: 38.7 kg

DRUGS (3)
  1. FUROSEMIDE (MANUFACTURER UNKNOWN) (FUROSEMIDE) (FUROSEMIDE) [Suspect]
     Indication: PRODUCT USED FOR UNKNOWN INDICATION
  2. TOBRAMYCIN (MANFACTURER UNKNOWN) (TOBRAMYCIN) (TOBRAMYCIN) [Suspect]
     Indication: PRODUCT USED FOR UNKNOWN INDICATION
  3. TACROLIMUS (TACROLIMUS) [Suspect]
     Indication: PRODUCT USED FOR UNKNOWN INDICATION

REACTIONS (4)
  - Renal tubular necrosis [None]
  - Renal failure acute [None]
  - Lung transplant [None]
  - Continuous haemodiafiltration [None]
